FAERS Safety Report 10911762 (Version 3)
Quarter: 2015Q2

REPORT INFORMATION
  Report Type: Spontaneous
  Country: US (occurrence: None)
  Receive Date: 20150309
  Receipt Date: 20150420
  Transmission Date: 20150821
  Serious: Yes (Other)
  Sender: FDA-Public Use
  Company Number: 2015AKN00119

PATIENT
  Age: 31 Year
  Sex: Female

DRUGS (2)
  1. UNSPECIFIED INTRAUTENINE DEVICE [Concomitant]
  2. MYORISAN [Suspect]
     Active Substance: ISOTRETINOIN
     Dosage: 80 MG, 1X/DAY, ORAL
     Route: 048
     Dates: start: 20140829, end: 20150220

REACTIONS (3)
  - Pregnancy with contraceptive device [None]
  - Maternal exposure before pregnancy [None]
  - Abortion induced [None]

NARRATIVE: CASE EVENT DATE: 20150220
